FAERS Safety Report 4424075-9 (Version None)
Quarter: 2004Q3

REPORT INFORMATION
  Report Type: 
  Country: None (occurrence: None)
  Receive Date: 20040809
  Receipt Date: 20040726
  Transmission Date: 20050211
  Serious: Yes (Hospitalization)
  Sender: FDA-Public Use
  Company Number: 2004050419

PATIENT
  Age: 68 Year
  Sex: Male

DRUGS (3)
  1. NIFEDIPINE [Suspect]
     Indication: HYPERTENSION
     Dosage: 10 MG, SUBLINGUAL
     Route: 060
  2. OTHER THERAPUEUTIC PRODUCTS (ALL OTHER THERAPEUTIC PRODUCTS) [Concomitant]
  3. INTERNATIONAL JOURNAL OF CLINICAL PRACTICE [Concomitant]

REACTIONS (5)
  - BLOOD PRESSURE INCREASED [None]
  - FEELING ABNORMAL [None]
  - ISCHAEMIC STROKE [None]
  - RESPIRATORY RATE INCREASED [None]
  - VISION BLURRED [None]
